FAERS Safety Report 9508381 (Version 1)
Quarter: 2013Q3

REPORT INFORMATION
  Report Type: Spontaneous
  Country: TR (occurrence: None)
  Receive Date: 20130905
  Receipt Date: 20130905
  Transmission Date: 20140515
  Serious: Yes (Life-Threatening)
  Sender: FDA-Public Use
  Company Number: FK201303866

PATIENT
  Age: 20 Year
  Sex: Male

DRUGS (2)
  1. METHYLPREDNISOLONE (MANUFACTURER UNKNOWN) (METHYLPREDNISOLONE SODIUM SUCCINATE) (METHYLPREDNISOLONE SODIUM SUCCINATE) [Suspect]
     Indication: ALLERGY TO ARTHROPOD STING
     Route: 042
  2. CHLORPHENIRAMINE MALEATE [Suspect]
     Indication: ALLERGY TO ARTHROPOD STING
     Route: 042

REACTIONS (1)
  - Acute myocardial infarction [None]
